FAERS Safety Report 10503694 (Version 1)
Quarter: 2014Q4

REPORT INFORMATION
  Report Type: Spontaneous
  Country: US (occurrence: None)
  Receive Date: 20141007
  Receipt Date: 20141007
  Transmission Date: 20150528
  Serious: Yes (Life-Threatening)
  Sender: FDA-Public Use
  Company Number: None

PATIENT
  Age: 58 Year
  Sex: Male
  Weight: 68.04 kg

DRUGS (1)
  1. CLINDAMYCIN [Suspect]
     Active Substance: CLINDAMYCIN\CLINDAMYCIN PHOSPHATE
     Indication: EYELID OEDEMA
     Dosage: 3 PILLS 3 X DAY THREE TIMES DAILY TAKEN BY MOUTH
     Route: 048
     Dates: start: 20141003, end: 20141006

REACTIONS (2)
  - Dyspnoea [None]
  - Burning sensation [None]

NARRATIVE: CASE EVENT DATE: 20141006
